FAERS Safety Report 19522489 (Version 1)
Quarter: 2021Q3

REPORT INFORMATION
  Report Type: Spontaneous
  Country: GB (occurrence: GB)
  Receive Date: 20210713
  Receipt Date: 20210713
  Transmission Date: 20211014
  Serious: Yes (Other)
  Sender: FDA-Public Use
  Company Number: GB-AUROBINDO-AUR-APL-2021-028860

PATIENT
  Age: 91 Year
  Sex: Male
  Weight: 59 kg

DRUGS (11)
  1. FLUCLOXACILLIN [Concomitant]
     Active Substance: FLUCLOXACILLIN
     Indication: CELLULITIS
     Dosage: 1 DOSAGE FORM, FOUR TIMES/DAY
     Route: 065
     Dates: start: 20210528, end: 20210604
  2. HYDROMOL [Concomitant]
     Indication: PRODUCT USED FOR UNKNOWN INDICATION
     Dosage: UNK(USE AS DIRECTED)
     Route: 065
     Dates: start: 20210611
  3. PREDNISOLONE. [Concomitant]
     Active Substance: PREDNISOLONE
     Indication: PRODUCT USED FOR UNKNOWN INDICATION
     Dosage: REDUCE FROM 30MG (6 TABLETS) TO 0MG (0 TABLETS) BY 5MG (1 TABLET) EACH DAY
     Route: 065
     Dates: start: 20210615
  4. LATANOPROST. [Concomitant]
     Active Substance: LATANOPROST
     Indication: PRODUCT USED FOR UNKNOWN INDICATION
     Dosage: 1 DROP, ONCE A DAY
     Route: 065
     Dates: start: 20200901
  5. FUROSEMIDE. [Concomitant]
     Active Substance: FUROSEMIDE
     Indication: PRODUCT USED FOR UNKNOWN INDICATION
     Dosage: 1 DOSAGE FORM, TWO TIMES A DAY(EACH MORNING AND LUNCH)
     Route: 065
     Dates: start: 20210316
  6. LACTULOSE. [Concomitant]
     Active Substance: LACTULOSE
     Indication: CONSTIPATION
     Dosage: 10 MILLILITER, AS NECESSARY(USE AS DIRECTED)
     Route: 065
     Dates: start: 20210601
  7. SENNA [Concomitant]
     Active Substance: SENNA LEAF\SENNOSIDES\SENNOSIDES A AND B
     Indication: PRODUCT USED FOR UNKNOWN INDICATION
     Dosage: TAKE ONE OR TWO TABLETS ONCE A DAY AT BEDTIME W...
     Route: 065
     Dates: start: 20201029
  8. RAMIPRIL CAPSULE [Suspect]
     Active Substance: RAMIPRIL
     Indication: PRODUCT USED FOR UNKNOWN INDICATION
     Dosage: 1.25 MILLIGRAM, ONCE A DAY
     Route: 065
     Dates: start: 20210316
  9. BISOPROLOL [Concomitant]
     Active Substance: BISOPROLOL
     Indication: PRODUCT USED FOR UNKNOWN INDICATION
     Dosage: 1 DOSAGE FORM, ONCE A DAY
     Route: 065
     Dates: start: 20210316
  10. AZOPT [Concomitant]
     Active Substance: BRINZOLAMIDE
     Indication: PRODUCT USED FOR UNKNOWN INDICATION
     Dosage: 1 DROP,3 TIMES A DAY(TO BOTH EYES   )
     Route: 065
     Dates: start: 20200901
  11. CLOBETASOL PROPIONATE. [Concomitant]
     Active Substance: CLOBETASOL PROPIONATE
     Indication: PRODUCT USED FOR UNKNOWN INDICATION
     Dosage: UNK(VERY POTENT STEROID CREAM ? APPLY SPARINGLY TO)
     Route: 065
     Dates: start: 20210611

REACTIONS (2)
  - Blister [Unknown]
  - Pemphigoid [Recovering/Resolving]

NARRATIVE: CASE EVENT DATE: 20210616
